FAERS Safety Report 5738636-8 (Version None)
Quarter: 2008Q2

REPORT INFORMATION
  Report Type: 
  Country: None (occurrence: None)
  Receive Date: 20080515
  Receipt Date: 20080512
  Transmission Date: 20081010
  Serious: Yes (Death)
  Sender: FDA-Public Use
  Company Number: PHEH2008US04505

PATIENT
  Sex: Male

DRUGS (1)
  1. RECLAST [Suspect]
     Indication: OSTEITIS DEFORMANS
     Dosage: 5 MG ONCE PER YEAR
     Route: 042
     Dates: start: 20080501

REACTIONS (2)
  - CARDIAC ARREST [None]
  - LIFE SUPPORT [None]
